FAERS Safety Report 9271464 (Version 1)
Quarter: 2013Q2

REPORT INFORMATION
  Report Type: Spontaneous
  Country: US (occurrence: US)
  Receive Date: 20130506
  Receipt Date: 20130506
  Transmission Date: 20140414
  Serious: Yes (Disabling)
  Sender: FDA-Public Use
  Company Number: US-JNJFOC-20130317488

PATIENT
  Age: 20 Year
  Sex: Female

DRUGS (4)
  1. XARELTO [Suspect]
     Indication: PULMONARY EMBOLISM
     Route: 048
     Dates: start: 20130315
  2. XARELTO [Suspect]
     Indication: DEEP VEIN THROMBOSIS
     Route: 048
     Dates: start: 20130315
  3. XARELTO [Suspect]
     Indication: EMBOLISM
     Route: 048
     Dates: start: 20130315
  4. FERROUS SULPHATE [Concomitant]
     Indication: ANAEMIA
     Route: 065

REACTIONS (1)
  - Vision blurred [Recovered/Resolved]
